FAERS Safety Report 24697708 (Version 1)
Quarter: 2024Q4

REPORT INFORMATION
  Report Type: Spontaneous
  Country: CA (occurrence: CA)
  Receive Date: 20241204
  Receipt Date: 20241204
  Transmission Date: 20250114
  Serious: Yes (Other)
  Sender: PFIZER
  Company Number: CA-PFIZER INC-202400314264

PATIENT
  Age: 65 Year
  Sex: Female

DRUGS (11)
  1. SULFASALAZINE [Suspect]
     Active Substance: SULFASALAZINE
     Indication: Psoriatic arthropathy
     Dosage: 1 G 2X/DAY
  2. GLICLAZIDE [Concomitant]
     Active Substance: GLICLAZIDE
  3. JARDIANCE [Concomitant]
     Active Substance: EMPAGLIFLOZIN
  4. SITAGLIPTIN [Concomitant]
     Active Substance: SITAGLIPTIN
  5. BISOPROLOL [Concomitant]
     Active Substance: BISOPROLOL
  6. AMLODIPINE [Concomitant]
     Active Substance: AMLODIPINE BESYLATE
     Dosage: 5 MG, DAILY
  7. ATORVASTATIN [Concomitant]
     Active Substance: ATORVASTATIN
  8. ETANERCEPT [Concomitant]
     Active Substance: ETANERCEPT
  9. MISOPROSTOL [Concomitant]
     Active Substance: MISOPROSTOL
  10. BETADERM [Concomitant]
     Active Substance: BETAMETHASONE VALERATE
  11. ETANERCEPT [Concomitant]
     Active Substance: ETANERCEPT

REACTIONS (4)
  - Hyperkalaemia [Unknown]
  - Psoriasis [Not Recovered/Not Resolved]
  - Hypertension [Unknown]
  - Foot fracture [Unknown]
